FAERS Safety Report 9588279 (Version 1)
Quarter: 2013Q4

REPORT INFORMATION
  Report Type: Spontaneous
  Country: US (occurrence: US)
  Receive Date: 20131003
  Receipt Date: 20131003
  Transmission Date: 20140711
  Serious: No
  Sender: FDA-Public Use
  Company Number: US-AMGEN-USASP2012063689

PATIENT
  Age: 53 Year
  Sex: Male
  Weight: 81.63 kg

DRUGS (4)
  1. ENBREL [Suspect]
     Indication: PSORIASIS
     Dosage: 50 MG, 2 TIMES/WK FOR 3 MONTHS
     Route: 058
  2. LISINOPRIL [Concomitant]
     Dosage: 30 MG, UNK
  3. HYDROCHLOROTH [Concomitant]
     Dosage: 12.5 MG, UNK
  4. LIPITOR [Concomitant]
     Dosage: 10 MG, UNK

REACTIONS (1)
  - Injection site pain [Unknown]
